FAERS Safety Report 19904575 (Version 1)
Quarter: 2021Q4

REPORT INFORMATION
  Report Type: Report from Study
  Country: BR (occurrence: BR)
  Receive Date: 20211001
  Receipt Date: 20211001
  Transmission Date: 20220304
  Serious: Yes (Other)
  Sender: FDA-Public Use
  Company Number: BR-TAKEDA-2021TUS059391

PATIENT
  Age: 38 Year
  Sex: Male

DRUGS (1)
  1. HEMO-8R [Suspect]
     Active Substance: ANTIHEMOPHILIC FACTOR, HUMAN RECOMBINANT
     Indication: Factor VIII deficiency
     Dosage: 1500 INTERNATIONAL UNIT, 3/WEEK
     Route: 042
     Dates: start: 2012

REACTIONS (5)
  - Nephrolithiasis [Recovering/Resolving]
  - Osteoarthritis [Unknown]
  - Overdose [Unknown]
  - Headache [Recovering/Resolving]
  - Arthralgia [Recovering/Resolving]

NARRATIVE: CASE EVENT DATE: 20210101
